FAERS Safety Report 5296101-9 (Version None)
Quarter: 2007Q2

REPORT INFORMATION
  Report Type: 
  Country: None (occurrence: None)
  Receive Date: 20070413
  Receipt Date: 20070402
  Transmission Date: 20071010
  Serious: Yes (Hospitalization)
  Sender: FDA-Public Use
  Company Number: AT-AVENTIS-200713000GDDC

PATIENT
  Age: 70 Year
  Sex: Male
  Weight: 86 kg

DRUGS (4)
  1. TAXOTERE [Suspect]
     Dosage: DOSE: 160 MG
     Route: 042
     Dates: start: 20070319, end: 20070320
  2. CISPLATIN [Suspect]
     Dosage: DOSE: 160 MG
     Route: 042
     Dates: start: 20070319, end: 20070320
  3. ERBITUX [Suspect]
     Dosage: DOSE: 400 MG/M2
     Route: 042
     Dates: start: 20070319, end: 20070320
  4. AUGMENTIN                          /00756801/ [Concomitant]
     Dates: end: 20070402

REACTIONS (4)
  - ACUTE PSYCHOSIS [None]
  - CONFUSIONAL STATE [None]
  - DIARRHOEA [None]
  - RASH [None]
